FAERS Safety Report 5889126-3 (Version None)
Quarter: 2008Q3

REPORT INFORMATION
  Report Type: 
  Country: None (occurrence: None)
  Receive Date: 20080919
  Receipt Date: 20080908
  Transmission Date: 20090109
  Serious: Yes (Other)
  Sender: FDA-Public Use
  Company Number: GB-BAYER-200812442BNE

PATIENT
  Sex: Female

DRUGS (1)
  1. MIRENA [Suspect]
     Indication: DRUG USE FOR UNKNOWN INDICATION
     Route: 015
     Dates: start: 20080513

REACTIONS (13)
  - DEPRESSION [None]
  - DIZZINESS [None]
  - FATIGUE [None]
  - GENITAL HAEMORRHAGE [None]
  - HOT FLUSH [None]
  - MALAISE [None]
  - MENORRHAGIA [None]
  - MOOD SWINGS [None]
  - NAUSEA [None]
  - PANIC ATTACK [None]
  - UTERINE SPASM [None]
  - VAGINAL PAIN [None]
  - VERTIGO [None]
